FAERS Safety Report 18770006 (Version 1)
Quarter: 2021Q1

REPORT INFORMATION
  Report Type: Spontaneous
  Country: JP (occurrence: JP)
  Receive Date: 20210122
  Receipt Date: 20210122
  Transmission Date: 20210419
  Serious: Yes (Other)
  Sender: FDA-Public Use
  Company Number: JP-JNJFOC-20210131439

PATIENT
  Sex: Male

DRUGS (4)
  1. HYPNOTICS AND SEDATIVES, ANTIANXIETICS [Concomitant]
     Active Substance: UNSPECIFIED INGREDIENT
     Dosage: DOSE UNKNOWN
     Route: 048
  2. RISPERDAL [Suspect]
     Active Substance: RISPERIDONE
     Indication: SCHIZOPHRENIA
     Dosage: DOSE UNKNOWN
     Route: 048
  3. VEGETAMIN?A [Concomitant]
     Active Substance: CHLORPROMAZINE HYDROCHLORIDE\PHENOBARBITAL\PROMETHAZINE
     Dosage: 4?6 DF
     Route: 048
  4. CHLORPROMAZINE. [Concomitant]
     Active Substance: CHLORPROMAZINE
     Dosage: DOSE UNKNOWN
     Route: 048

REACTIONS (12)
  - Seizure [Unknown]
  - Altered state of consciousness [Unknown]
  - Eczema [Not Recovered/Not Resolved]
  - Water intoxication [Unknown]
  - Glaucoma [Unknown]
  - Cholelithiasis [Unknown]
  - Nervous system disorder [Unknown]
  - Overdose [Unknown]
  - Therapy interrupted [Unknown]
  - Suicide attempt [Unknown]
  - Confusional state [Unknown]
  - Periodontitis [Unknown]
